FAERS Safety Report 11184709 (Version 3)
Quarter: 2016Q1

REPORT INFORMATION
  Report Type: Spontaneous
  Country: NL (occurrence: NL)
  Receive Date: 20150612
  Receipt Date: 20160106
  Transmission Date: 20160525
  Serious: Yes (Other)
  Sender: FDA-Public Use
  Company Number: NL-BAYER-2015-328639

PATIENT
  Age: 30 Year
  Sex: Female

DRUGS (1)
  1. MIRENA [Suspect]
     Active Substance: LEVONORGESTREL
     Dosage: UNK
     Dates: start: 201503

REACTIONS (4)
  - Rash pustular [Unknown]
  - Acne [Unknown]
  - Subcutaneous abscess [Unknown]
  - Adnexa uteri pain [Unknown]

NARRATIVE: CASE EVENT DATE: 2015
